FAERS Safety Report 18809045 (Version 1)
Quarter: 2021Q1

REPORT INFORMATION
  Report Type: Spontaneous
  Country: US (occurrence: US)
  Receive Date: 20210129
  Receipt Date: 20210129
  Transmission Date: 20210419
  Serious: Yes (Hospitalization)
  Sender: FDA-Public Use
  Company Number: US-PFIZER INC-001-0902-990026

PATIENT
  Age: 54 Year
  Sex: Male

DRUGS (2)
  1. NARDIL [Suspect]
     Active Substance: PHENELZINE SULFATE
     Indication: DEPRESSION
     Dosage: UNK
     Route: 048
     Dates: start: 1972, end: 1993
  2. PARNATE [Suspect]
     Active Substance: TRANYLCYPROMINE SULFATE
     Indication: DEPRESSION
     Dosage: UNK
     Route: 048
     Dates: start: 1993

REACTIONS (1)
  - Lymphadenopathy [Recovered/Resolved]

NARRATIVE: CASE EVENT DATE: 1992
